FAERS Safety Report 8222686-6 (Version None)
Quarter: 2012Q1

REPORT INFORMATION
  Report Type: 
  Country: None (occurrence: None)
  Receive Date: 20120320
  Receipt Date: 20120319
  Transmission Date: 20120608
  Serious: Yes (Other)
  Sender: FDA-Public Use
  Company Number: JP-BRACCO-005745

PATIENT
  Age: 72 Year
  Sex: Male
  Weight: 69 kg

DRUGS (1)
  1. LIPIODOL ULTRA-FLUIDE [Suspect]

REACTIONS (2)
  - OFF LABEL USE [None]
  - NEOPLASM PROGRESSION [None]
